FAERS Safety Report 18468323 (Version 1)
Quarter: 2020Q4

REPORT INFORMATION
  Report Type: Spontaneous
  Country: US (occurrence: US)
  Receive Date: 20201104
  Receipt Date: 20201104
  Transmission Date: 20210114
  Serious: Yes (Hospitalization)
  Sender: FDA-Public Use
  Company Number: None

PATIENT
  Age: 62 Year
  Sex: Female

DRUGS (19)
  1. OXYCODONE [Concomitant]
     Active Substance: OXYCODONE
  2. DICLOFENAC [Concomitant]
     Active Substance: DICLOFENAC
  3. DULOXETINE. [Concomitant]
     Active Substance: DULOXETINE
  4. JUICE. FIB [Concomitant]
  5. BUPROPION. [Concomitant]
     Active Substance: BUPROPION
  6. CELECOXIB. [Concomitant]
     Active Substance: CELECOXIB
  7. CYCLOBENZARPR [Concomitant]
  8. FOLIC ACID. [Concomitant]
     Active Substance: FOLIC ACID
  9. ESTRADIOL. [Concomitant]
     Active Substance: ESTRADIOL
  10. WELLBUTRIN [Concomitant]
     Active Substance: BUPROPION HYDROCHLORIDE
  11. HUMIRA [Suspect]
     Active Substance: ADALIMUMAB
     Indication: RHEUMATOID ARTHRITIS
     Dosage: ?          OTHER FREQUENCY:EVERY 2 WKS;?
     Route: 058
     Dates: start: 20180131
  12. FAMOTIDINE. [Concomitant]
     Active Substance: FAMOTIDINE
  13. LOSARTAN POT [Concomitant]
     Active Substance: LOSARTAN POTASSIUM
  14. GABAPENTIN. [Concomitant]
     Active Substance: GABAPENTIN
  15. METHOCARBAM [Concomitant]
     Active Substance: METHOCARBAMOL
  16. PANTOPRAZOLE, PREDNISONE [Concomitant]
  17. BUTABITAL [Concomitant]
     Active Substance: ACETAMINOPHEN\BUTALBITAL\CAFFEINE
  18. ACLOVIR [Concomitant]
  19. ZOLPIDEM [Concomitant]
     Active Substance: ZOLPIDEM TARTRATE

REACTIONS (1)
  - Abdominoplasty [None]

NARRATIVE: CASE EVENT DATE: 20201007
